FAERS Safety Report 19740874 (Version 1)
Quarter: 2021Q3

REPORT INFORMATION
  Report Type: Report from Study
  Country: None (occurrence: CO)
  Receive Date: 20210825
  Receipt Date: 20210825
  Transmission Date: 20211014
  Serious: Yes (Hospitalization)
  Sender: FDA-Public Use
  Company Number: CO-ABBVIE-21P-036-4052776-00

PATIENT
  Age: 1 Month
  Sex: Male

DRUGS (1)
  1. SYNAGIS [Suspect]
     Active Substance: PALIVIZUMAB
     Indication: RESPIRATORY SYNCYTIAL VIRUS TEST
     Route: 030
     Dates: start: 20210712

REACTIONS (2)
  - Pneumonitis [Recovering/Resolving]
  - Bronchiolitis [Recovering/Resolving]

NARRATIVE: CASE EVENT DATE: 20210815
